FAERS Safety Report 5999362-3 (Version None)
Quarter: 2008Q4

REPORT INFORMATION
  Report Type: 
  Country: None (occurrence: None)
  Receive Date: 20081215
  Receipt Date: 20080801
  Transmission Date: 20090506
  Serious: No
  Sender: FDA-Public Use
  Company Number: US-AMGEN-KDL298891

PATIENT
  Sex: Female

DRUGS (1)
  1. ENBREL [Suspect]
     Indication: REITER'S SYNDROME
     Route: 058
     Dates: start: 20000101

REACTIONS (12)
  - ARTHRALGIA [None]
  - BODY TEMPERATURE INCREASED [None]
  - CHILLS [None]
  - CYSTITIS [None]
  - DYSURIA [None]
  - ESCHERICHIA INFECTION [None]
  - FLANK PAIN [None]
  - HYPERHIDROSIS [None]
  - KIDNEY INFECTION [None]
  - PAIN [None]
  - POLLAKIURIA [None]
  - STAPHYLOCOCCAL INFECTION [None]
